FAERS Safety Report 4460622-9 (Version None)
Quarter: 2004Q3

REPORT INFORMATION
  Report Type: 
  Country: None (occurrence: None)
  Receive Date: 20040928
  Receipt Date: 20040831
  Transmission Date: 20050211
  Serious: No
  Sender: FDA-Public Use
  Company Number: US-GLAXOSMITHKLINE-A0524062A

PATIENT
  Age: 68 Year
  Sex: Male

DRUGS (6)
  1. ADVAIR DISKUS 100/50 [Suspect]
     Dosage: 1PUFF AS REQUIRED
     Route: 055
     Dates: start: 20031001
  2. CRESTOR [Suspect]
     Dates: start: 20040501, end: 20040830
  3. LIPITOR [Concomitant]
  4. ALLEGRA [Concomitant]
  5. CELEBREX [Concomitant]
  6. AVAPRO [Concomitant]

REACTIONS (4)
  - ABDOMINAL PAIN UPPER [None]
  - BLOOD GLUCOSE INCREASED [None]
  - HYPERLIPIDAEMIA [None]
  - MUSCLE FATIGUE [None]
